FAERS Safety Report 7088502-3 (Version None)
Quarter: 2010Q4

REPORT INFORMATION
  Report Type: 
  Country: None (occurrence: None)
  Receive Date: 20101108
  Receipt Date: 20101102
  Transmission Date: 20110411
  Serious: Yes (Congenital Anomaly)
  Sender: FDA-Public Use
  Company Number: FR-ROCHE-738554

PATIENT
  Sex: Male
  Weight: 2 kg

DRUGS (8)
  1. APRANAX [Suspect]
     Route: 064
     Dates: start: 20080601, end: 20080701
  2. BACTRIM [Suspect]
     Route: 064
     Dates: start: 20080601, end: 20080701
  3. ORENCIA [Suspect]
     Route: 064
     Dates: start: 20080601, end: 20080701
  4. MYFORTIC [Suspect]
     Route: 064
     Dates: start: 20080601, end: 20080701
  5. CORTANCYL [Concomitant]
     Dates: start: 20080601, end: 20081230
  6. COLCHICINE OPOCALCIUM [Concomitant]
     Dates: start: 20080601, end: 20081230
  7. VALACYCLOVIR HYDROCHLORIDE [Concomitant]
     Dates: start: 20080601, end: 20081230
  8. SPECIAFOLDINE [Concomitant]
     Dates: start: 20080601

REACTIONS (3)
  - CONGENITAL CENTRAL NERVOUS SYSTEM ANOMALY [None]
  - MENINGOCELE [None]
  - NERVOUS SYSTEM DISORDER [None]
